FAERS Safety Report 4636698-2 (Version None)
Quarter: 2005Q2

REPORT INFORMATION
  Report Type: 
  Country: None (occurrence: None)
  Receive Date: 20050414
  Receipt Date: 20050330
  Transmission Date: 20051028
  Serious: No
  Sender: FDA-Public Use
  Company Number: 2005UW04979

PATIENT

DRUGS (1)
  1. CRESTOR [Suspect]

REACTIONS (2)
  - DIALYSIS [None]
  - RENAL FAILURE [None]
